FAERS Safety Report 21023816 (Version 6)
Quarter: 2022Q4

REPORT INFORMATION
  Report Type: Report from Study
  Country: US (occurrence: US)
  Receive Date: 20220629
  Receipt Date: 20221105
  Transmission Date: 20230113
  Serious: Yes (Hospitalization, Other)
  Sender: FDA-Public Use
  Company Number: US-NOVARTISPH-NVSC2022US147623

PATIENT
  Sex: Female

DRUGS (1)
  1. ENTRESTO [Suspect]
     Active Substance: SACUBITRIL\VALSARTAN
     Indication: Product used for unknown indication
     Dosage: 1 DOSAGE FORM, BID
     Route: 048

REACTIONS (10)
  - Swelling [Recovering/Resolving]
  - Hypotension [Unknown]
  - Parkinson^s disease [Unknown]
  - Pulmonary congestion [Unknown]
  - Sensitivity to weather change [Unknown]
  - Nasopharyngitis [Not Recovered/Not Resolved]
  - Insomnia [Unknown]
  - SARS-CoV-2 test positive [Unknown]
  - Cough [Unknown]
  - Hypersensitivity [Unknown]
